FAERS Safety Report 7193331-6 (Version None)
Quarter: 2010Q4

REPORT INFORMATION
  Report Type: 
  Country: None (occurrence: None)
  Receive Date: 20101223
  Receipt Date: 20101116
  Transmission Date: 20110411
  Serious: No
  Sender: FDA-Public Use
  Company Number: US-BAYER-2010-002266

PATIENT
  Sex: Male

DRUGS (3)
  1. ULTRAVIST 150 [Suspect]
     Indication: COMPUTERISED TOMOGRAM ABDOMEN
     Dosage: 100 ML, ONCE
     Route: 042
     Dates: start: 20101111, end: 20101111
  2. ULTRAVIST 150 [Suspect]
  3. ULTRAVIST 150 [Suspect]

REACTIONS (1)
  - URTICARIA [None]
